FAERS Safety Report 8054262-2 (Version None)
Quarter: 2012Q1

REPORT INFORMATION
  Report Type: 
  Country: None (occurrence: None)
  Receive Date: 20120118
  Receipt Date: 20120110
  Transmission Date: 20120608
  Serious: Yes (Other)
  Sender: FDA-Public Use
  Company Number: PHFR2011GB01957

PATIENT
  Sex: Female

DRUGS (1)
  1. CLOZARIL [Suspect]
     Indication: SCHIZOPHRENIA
     Dosage: UNK
     Route: 048
     Dates: start: 20050118, end: 20110601

REACTIONS (10)
  - URINARY TRACT INFECTION [None]
  - MENTAL IMPAIRMENT [None]
  - BALANCE DISORDER [None]
  - VISUAL ACUITY REDUCED [None]
  - SOMNOLENCE [None]
  - PLATELET AGGREGATION [None]
  - ANXIETY [None]
  - TREMOR [None]
  - NEUTROPHIL COUNT DECREASED [None]
  - WHITE BLOOD CELL COUNT DECREASED [None]
